FAERS Safety Report 16492152 (Version 2)
Quarter: 2019Q2

REPORT INFORMATION
  Report Type: Spontaneous
  Country: CA (occurrence: CA)
  Receive Date: 20190628
  Receipt Date: 20190628
  Transmission Date: 20190711
  Serious: Yes (Other)
  Sender: FDA-Public Use
  Company Number: CA-SAMSUNG BIOEPIS-SB-2019-15904

PATIENT
  Age: 59 Year
  Sex: Male

DRUGS (21)
  1. INFLIXIMAB [Suspect]
     Active Substance: INFLIXIMAB
     Indication: ANKYLOSING SPONDYLITIS
     Dosage: UNKNOWN
     Route: 065
  2. INFLIXIMAB [Suspect]
     Active Substance: INFLIXIMAB
     Route: 042
  3. CELEBREX [Suspect]
     Active Substance: CELECOXIB
     Indication: ARTHRITIS
     Dosage: UNKNOWN
     Route: 065
  4. HUMIRA [Suspect]
     Active Substance: ADALIMUMAB
     Indication: PRODUCT USED FOR UNKNOWN INDICATION
     Dosage: UNKNOWN
     Route: 058
  5. INDOCID [Suspect]
     Active Substance: INDOMETHACIN
     Indication: PRODUCT USED FOR UNKNOWN INDICATION
     Dosage: UNKNOWN
     Route: 065
  6. INFLIXIMAB [Suspect]
     Active Substance: INFLIXIMAB
     Dosage: UNKNOWN
     Route: 065
  7. ENBREL [Suspect]
     Active Substance: ETANERCEPT
     Indication: PSORIASIS
     Dosage: UNKNOWN
     Route: 065
  8. METHOTREXATE. [Suspect]
     Active Substance: METHOTREXATE
     Route: 065
  9. METHOTREXATE. [Suspect]
     Active Substance: METHOTREXATE
     Route: 065
  10. PIROXICAM. [Suspect]
     Active Substance: PIROXICAM
     Indication: PRODUCT USED FOR UNKNOWN INDICATION
     Dosage: UNKNOWN
     Route: 065
  11. ESOMEPRAZOLE MAGNESIUM TRIHYDRATE [Concomitant]
     Active Substance: ESOMEPRAZOLE MAGNESIUM
     Indication: PRODUCT USED FOR UNKNOWN INDICATION
     Dosage: UNKNOWN
     Route: 065
  12. METHOTREXATE. [Suspect]
     Active Substance: METHOTREXATE
     Indication: PRODUCT USED FOR UNKNOWN INDICATION
     Route: 065
  13. METHOTREXATE. [Suspect]
     Active Substance: METHOTREXATE
     Route: 058
  14. VIOXX [Suspect]
     Active Substance: ROFECOXIB
     Indication: ARTHRITIS
     Dosage: UNKNOWN
     Route: 065
  15. VITAMIN B12 [Concomitant]
     Active Substance: CYANOCOBALAMIN
     Indication: SUPPLEMENTATION THERAPY
     Dosage: UNKNOWN
     Route: 065
  16. INFLIXIMAB [Suspect]
     Active Substance: INFLIXIMAB
     Dosage: UNKNOWN
     Route: 065
  17. SULFASALAZINE. [Suspect]
     Active Substance: SULFASALAZINE
     Indication: PRODUCT USED FOR UNKNOWN INDICATION
     Route: 065
  18. CALCIUM [Concomitant]
     Active Substance: CALCIUM
     Indication: SUPPLEMENTATION THERAPY
     Dosage: UNKNOWN
     Route: 065
  19. INFLIXIMAB [Suspect]
     Active Substance: INFLIXIMAB
     Route: 042
  20. ERGOCALCIFEROL. [Concomitant]
     Active Substance: ERGOCALCIFEROL
     Indication: SUPPLEMENTATION THERAPY
     Dosage: UNKNOWN
     Route: 065
  21. AMLODIPINE BESILATE [Concomitant]
     Active Substance: AMLODIPINE BESYLATE
     Indication: PRODUCT USED FOR UNKNOWN INDICATION
     Dosage: UNKNOWN
     Route: 065

REACTIONS (6)
  - Ankylosing spondylitis [Recovering/Resolving]
  - Osteopenia [Recovering/Resolving]
  - Rheumatoid arthritis [Recovering/Resolving]
  - Chest expansion decreased [Recovering/Resolving]
  - Blood pressure fluctuation [Recovering/Resolving]
  - Drug ineffective [Recovering/Resolving]
